FAERS Safety Report 5573948-2 (Version None)
Quarter: 2007Q4

REPORT INFORMATION
  Report Type: 
  Country: None (occurrence: None)
  Receive Date: 20071226
  Receipt Date: 20071218
  Transmission Date: 20080405
  Serious: Yes (Hospitalization)
  Sender: FDA-Public Use
  Company Number: US-GENENTECH-252712

PATIENT
  Sex: Male
  Weight: 74.83 kg

DRUGS (16)
  1. BEVACIZUMAB [Suspect]
     Indication: RECTAL CANCER
     Dosage: 431 MG, UNK
     Dates: start: 20070611, end: 20070820
  2. BEVACIZUMAB [Suspect]
     Dosage: 5 MG/KG, DAYS 1+15
     Route: 042
     Dates: start: 20070820, end: 20071029
  3. FLUOROURACIL [Suspect]
     Indication: RECTAL CANCER
     Dosage: 812 MG, UNK
     Route: 042
     Dates: start: 20070611, end: 20070722
  4. FLUOROURACIL [Suspect]
     Dosage: 400 MG/M2, DAYS 1+15
     Route: 040
     Dates: start: 20070820, end: 20071029
  5. FLUOROURACIL [Suspect]
     Dosage: 2400 MG/M2, DAYS 1+15
     Route: 042
     Dates: start: 20070820, end: 20071029
  6. LEUCOVORIN [Suspect]
     Indication: RECTAL CANCER
     Dosage: 350 MG, UNK
     Dates: start: 20070611, end: 20071126
  7. LEUCOVORIN [Suspect]
     Dosage: 350 MG, DAYS 1+15
     Route: 042
     Dates: start: 20070820, end: 20071029
  8. OXALIPLATIN [Suspect]
     Indication: RECTAL CANCER
     Dosage: 173 MG, UNK
     Dates: start: 20070611, end: 20071126
  9. OXALIPLATIN [Suspect]
     Dosage: 85 MG/M2, DAYS 1+15
     Route: 042
     Dates: start: 20070820, end: 20071029
  10. RADIATION THERAPY [Suspect]
     Indication: RECTAL CANCER
     Dosage: 50.4 GY, UNK
     Dates: start: 20070611, end: 20070719
  11. MORPHINE [Concomitant]
     Indication: DRUG USE FOR UNKNOWN INDICATION
     Dosage: 15 MG, Q12H
     Route: 048
     Dates: start: 20071116
  12. PAXIL [Concomitant]
     Indication: DRUG USE FOR UNKNOWN INDICATION
     Dosage: 10 MG, QD
     Dates: start: 20070924
  13. ATIVAN [Concomitant]
     Indication: DRUG USE FOR UNKNOWN INDICATION
     Dosage: 1 MG, PRN
     Route: 048
     Dates: start: 20070702
  14. ACTOS [Concomitant]
     Indication: DRUG USE FOR UNKNOWN INDICATION
     Dosage: 45 MG, UNK
  15. NOVOLOG [Concomitant]
     Indication: DRUG USE FOR UNKNOWN INDICATION
     Dosage: 5 UNIT, UNK
  16. LEVEMIR [Concomitant]
     Indication: DRUG USE FOR UNKNOWN INDICATION
     Dosage: 10 UNIT, QHS

REACTIONS (3)
  - COLONIC OBSTRUCTION [None]
  - INTESTINAL PERFORATION [None]
  - PROCTALGIA [None]
